FAERS Safety Report 13671981 (Version 3)
Quarter: 2017Q3

REPORT INFORMATION
  Report Type: Spontaneous
  Country: US (occurrence: US)
  Receive Date: 20170621
  Receipt Date: 20170809
  Transmission Date: 20171127
  Serious: Yes (Hospitalization, Other)
  Sender: FDA-Public Use
  Company Number: US-009507513-1706USA007854

PATIENT
  Age: 62 Year
  Sex: Male
  Weight: 64.5 kg

DRUGS (4)
  1. CISPLATIN. [Suspect]
     Active Substance: CISPLATIN
     Indication: PLASMA CELL MYELOMA
     Dosage: 20 MG, CONTINUOUS INFUSION
     Route: 042
     Dates: start: 20170306, end: 20170310
  2. CYCLOPHOSPHAMIDE. [Suspect]
     Active Substance: CYCLOPHOSPHAMIDE
     Indication: PLASMA CELL MYELOMA
     Dosage: 680 MG, CONTINUOUS LNFUSION
     Route: 042
     Dates: start: 20170306, end: 20170310
  3. ETOPOSIDE. [Suspect]
     Active Substance: ETOPOSIDE
     Indication: PLASMA CELL MYELOMA
     Dosage: 68 MG, CONTINUOUS CONFUSION
     Route: 042
     Dates: start: 20170306, end: 20170310
  4. DECADRON [Suspect]
     Active Substance: DEXAMETHASONE
     Indication: PLASMA CELL MYELOMA
     Dosage: 40 MG, ONCE IN 28 DAYS
     Route: 048
     Dates: start: 20161101

REACTIONS (1)
  - Sepsis [Recovered/Resolved]

NARRATIVE: CASE EVENT DATE: 20170326
